FAERS Safety Report 5608387-9 (Version None)
Quarter: 2008Q1

REPORT INFORMATION
  Report Type: 
  Country: None (occurrence: None)
  Receive Date: 20080125
  Receipt Date: 20080113
  Transmission Date: 20080703
  Serious: Yes (Hospitalization)
  Sender: FDA-Public Use
  Company Number: TR-JNJFOC-20071002602

PATIENT
  Sex: Female

DRUGS (1)
  1. DACOGEN [Suspect]
     Indication: CHRONIC MYELOMONOCYTIC LEUKAEMIA
     Dosage: , IN 1 MONTH, INTRAVENOUS
     Route: 042
     Dates: start: 20070401

REACTIONS (2)
  - CEREBELLAR SYNDROME [None]
  - FALL [None]
